FAERS Safety Report 4904896-6 (Version None)
Quarter: 2006Q1

REPORT INFORMATION
  Report Type: 
  Country: None (occurrence: None)
  Receive Date: 20060203
  Receipt Date: 20060125
  Transmission Date: 20060701
  Serious: Yes (Hospitalization, Disabling, Other)
  Sender: FDA-Public Use
  Company Number: 2006013298

PATIENT
  Age: 64 Year
  Sex: Female

DRUGS (4)
  1. SINEQUAN [Suspect]
     Indication: ILL-DEFINED DISORDER
     Dosage: 40 MG (10 MG, 4 IN 1 D), ORAL
     Route: 048
     Dates: start: 20051217, end: 20051229
  2. DAPSONE [Concomitant]
  3. MINOCIN [Concomitant]
  4. MORPHINE SULFATE [Concomitant]

REACTIONS (6)
  - BLOOD ALKALINE PHOSPHATASE INCREASED [None]
  - DISORIENTATION [None]
  - DRY MOUTH [None]
  - GAMMA-GLUTAMYLTRANSFERASE INCREASED [None]
  - INCORRECT DOSE ADMINISTERED [None]
  - VISION BLURRED [None]
